FAERS Safety Report 6983440-6 (Version None)
Quarter: 2010Q3

REPORT INFORMATION
  Report Type: 
  Country: None (occurrence: None)
  Receive Date: 20100914
  Receipt Date: 20080611
  Transmission Date: 20110219
  Serious: No
  Sender: FDA-Public Use
  Company Number: US-WYE-H04455408

PATIENT
  Age: 24 Year
  Sex: Male
  Weight: 95.34 kg

DRUGS (2)
  1. ADVIL LIQUI-GELS [Suspect]
     Dosage: 5 DOSE FREQUENCY, UNKNOWN
     Route: 048
     Dates: start: 20080422
  2. ACETAMINOPHEN/DIPHENHYDRAMINE HYDROCHLORIDE/PHENYLEPHRINE HYDROCHLORID [Suspect]
     Dosage: 3/4 OF THE BOTTLE
     Route: 048
     Dates: start: 20080422, end: 20080422

REACTIONS (3)
  - FEELING ABNORMAL [None]
  - INCORRECT DOSE ADMINISTERED [None]
  - INFREQUENT BOWEL MOVEMENTS [None]
